FAERS Safety Report 11312226 (Version 3)
Quarter: 2016Q1

REPORT INFORMATION
  Report Type: Spontaneous
  Country: US (occurrence: US)
  Receive Date: 20150727
  Receipt Date: 20160219
  Transmission Date: 20160525
  Serious: Yes (Hospitalization)
  Sender: FDA-Public Use
  Company Number: US-OTSUKA-2015_005882

PATIENT
  Age: 27 Year
  Sex: Male

DRUGS (1)
  1. ABILIFY MAINTENA [Suspect]
     Active Substance: ARIPIPRAZOLE
     Indication: AFFECTIVE DISORDER
     Dosage: 400 MG, QM
     Route: 030
     Dates: start: 201502

REACTIONS (8)
  - Substance abuse [Recovered/Resolved]
  - Imprisonment [Recovered/Resolved]
  - Feeling abnormal [Unknown]
  - Drug ineffective for unapproved indication [Unknown]
  - Hospitalisation [Recovered/Resolved]
  - Therapy change [Unknown]
  - Drug administered at inappropriate site [Unknown]
  - Treatment noncompliance [Unknown]

NARRATIVE: CASE EVENT DATE: 201502
